FAERS Safety Report 9124773 (Version 1)
Quarter: 2013Q1

REPORT INFORMATION
  Report Type: Spontaneous
  Country: US (occurrence: US)
  Receive Date: 20130227
  Receipt Date: 20130227
  Transmission Date: 20140127
  Serious: Yes (Other)
  Sender: FDA-Public Use
  Company Number: US-BRISTOL-MYERS SQUIBB COMPANY-17405077

PATIENT
  Age: 62 Year
  Sex: Female

DRUGS (1)
  1. ORENCIA FOR INJ [Suspect]
     Indication: RHEUMATOID ARTHRITIS
     Dosage: RESTART: SEP12?LAST INJ: 24JAN13
     Route: 042
     Dates: start: 20110817

REACTIONS (4)
  - Fall [Unknown]
  - Patella fracture [Unknown]
  - Drug ineffective [Unknown]
  - Abdominal discomfort [Unknown]
